FAERS Safety Report 18698737 (Version 1)
Quarter: 2021Q1

REPORT INFORMATION
  Report Type: Spontaneous
  Country: FR (occurrence: FR)
  Receive Date: 20210105
  Receipt Date: 20210105
  Transmission Date: 20210419
  Serious: Yes (Other)
  Sender: FDA-Public Use
  Company Number: FR-AUROBINDO-AUR-APL-2020-064063

PATIENT
  Age: 42 Year
  Sex: Female

DRUGS (5)
  1. GARDENAL [Suspect]
     Active Substance: PHENOBARBITAL
     Indication: EPILEPSY
     Dosage: TWICE IN THE MORNING, THRICE IN THE EVENING
     Route: 048
     Dates: start: 20031002
  2. URBANYL [Suspect]
     Active Substance: CLOBAZAM
     Indication: EPILEPSY
     Dosage: ONE TO THRICE BY DAY
     Route: 048
     Dates: start: 20031002
  3. CLONAZEPAM. [Suspect]
     Active Substance: CLONAZEPAM
     Indication: EPILEPSY
     Dosage: UNK, ONCE A DAY (5 TO 10 DROPS THE EVENING)
     Route: 048
     Dates: start: 20031002
  4. DEPAKINE CHRONO [Suspect]
     Active Substance: VALPROATE SODIUM
     Indication: EPILEPSY
     Dosage: 1500 MILLIGRAM (ONE IN THE MORNING, TWO IN THE EVENING)
     Route: 048
     Dates: start: 20031002
  5. LAMOTRIGINE. [Suspect]
     Active Substance: LAMOTRIGINE
     Indication: PRODUCT USED FOR UNKNOWN INDICATION
     Dosage: UNK
     Route: 065
     Dates: start: 20031002

REACTIONS (2)
  - Epilepsy [Unknown]
  - Exposure during pregnancy [Unknown]

NARRATIVE: CASE EVENT DATE: 200312
